FAERS Safety Report 14308369 (Version 1)
Quarter: 2017Q4

REPORT INFORMATION
  Report Type: Spontaneous
  Country: RO (occurrence: RO)
  Receive Date: 20171220
  Receipt Date: 20171220
  Transmission Date: 20180321
  Serious: Yes (Other)
  Sender: FDA-Public Use
  Company Number: RO-CIPLA LTD.-2017RO23565

PATIENT

DRUGS (10)
  1. CETIRIZINE [Suspect]
     Active Substance: CETIRIZINE HYDROCHLORIDE
     Indication: ALLERGIC REACTION TO EXCIPIENT
     Dosage: UNK, DOSAGE FORM: SOLUTION ()
     Route: 048
  2. RILMENIDINE [Suspect]
     Active Substance: RILMENIDINE
     Indication: HYPERTENSION
     Dosage: 1.5 MG, UNK, DOSAGE FORM: UNSPECIFIED
     Route: 065
  3. METFORMIN [Concomitant]
     Active Substance: METFORMIN HYDROCHLORIDE
     Indication: DIABETES MELLITUS
     Dosage: 1000 MG, UNK, DOSAGE FORM: UNSPECIFIED
     Route: 065
  4. AMLODIPINE BESYLATE. [Suspect]
     Active Substance: AMLODIPINE BESYLATE
     Indication: HYPERTENSION
     Dosage: 10 MG, UNK, DOSAGE FORM: UNSPECIFIED
     Route: 065
  5. LEVOCETIRIZINE [Suspect]
     Active Substance: LEVOCETIRIZINE
     Indication: ALLERGIC REACTION TO EXCIPIENT
     Dosage: 5 MG, PRN, AS NEEDED
     Route: 065
  6. METOPROLOL. [Suspect]
     Active Substance: METOPROLOL
     Indication: HYPERTENSION
     Dosage: 50 MG, DOSAGE FORM: UNSPECIFIED, 50 MG LONG RELEASE
     Route: 065
  7. LACTOSE [Suspect]
     Active Substance: LACTOSE
     Indication: PRODUCT USED FOR UNKNOWN INDICATION
     Dosage: UNK, DOSAGE FORM: UNSPECIFIED
     Route: 065
  8. INDAPAMIDE/PERINDOPRIL [Suspect]
     Active Substance: INDAPAMIDE\PERINDOPRIL
     Indication: HYPERTENSION
     Dosage: UNK, DOSAGE FORM: UNSPECIFIED
     Route: 065
  9. ALLOPURINOL. [Suspect]
     Active Substance: ALLOPURINOL
     Indication: HYPERURICAEMIA
     Dosage: 100 MG, DOSAGE FORM: UNSPECIFIED, 100 MG, UNK
     Route: 065
  10. HYDROCHLOROTHIAZIDE, TELMISARTAN [Suspect]
     Active Substance: HYDROCHLOROTHIAZIDE\TELMISARTAN
     Indication: HYPERTENSION
     Dosage: UNK, DOSAGE FORM: UNSPECIFIED
     Route: 065

REACTIONS (4)
  - Condition aggravated [Unknown]
  - Allergic reaction to excipient [Unknown]
  - Urticaria [Recovering/Resolving]
  - Angioedema [Unknown]

NARRATIVE: CASE EVENT DATE: 2017
